FAERS Safety Report 17767471 (Version 1)
Quarter: 2020Q2

REPORT INFORMATION
  Report Type: Spontaneous
  Country: GB (occurrence: GB)
  Receive Date: 20200511
  Receipt Date: 20200511
  Transmission Date: 20200714
  Serious: Yes (Death)
  Sender: FDA-Public Use
  Company Number: GB-PFIZER INC-2020181307

PATIENT
  Age: 51 Year
  Sex: Male

DRUGS (11)
  1. GENTAMICIN SULFATE. [Suspect]
     Active Substance: GENTAMICIN SULFATE
     Indication: EVIDENCE BASED TREATMENT
     Dosage: UNK
  2. NOREPINEPHRINE BITARTRATE. [Suspect]
     Active Substance: NOREPINEPHRINE BITARTRATE
     Indication: VASOPLEGIA SYNDROME
  3. MEROPENEM. [Suspect]
     Active Substance: MEROPENEM
     Indication: ANTIBIOTIC THERAPY
     Dosage: UNK
  4. VASOPRESSIN. [Suspect]
     Active Substance: VASOPRESSIN
     Indication: VASOPLEGIA SYNDROME
     Dosage: UNK
  5. VANCOMYCIN [Suspect]
     Active Substance: VANCOMYCIN
     Indication: EVIDENCE BASED TREATMENT
     Dosage: UNK
  6. NOREPINEPHRINE BITARTRATE. [Suspect]
     Active Substance: NOREPINEPHRINE BITARTRATE
     Indication: CARDIOPULMONARY BYPASS
     Dosage: UNK (LOW DOSE)
  7. GENTAMICIN SULFATE. [Suspect]
     Active Substance: GENTAMICIN SULFATE
     Indication: ANTIBIOTIC THERAPY
  8. DOPAMINE HCL [Suspect]
     Active Substance: DOPAMINE HYDROCHLORIDE
     Indication: VASOPLEGIA SYNDROME
     Dosage: UNK
  9. EPINEPHRINE. [Suspect]
     Active Substance: EPINEPHRINE
     Indication: CARDIOPULMONARY BYPASS
     Dosage: UNK (LOW DOSE)
  10. VANCOMYCIN [Suspect]
     Active Substance: VANCOMYCIN
     Indication: ANTIBIOTIC THERAPY
  11. CIPROFLOXACIN. [Suspect]
     Active Substance: CIPROFLOXACIN
     Indication: ANTIBIOTIC THERAPY
     Dosage: UNK

REACTIONS (1)
  - Drug ineffective [Fatal]
